FAERS Safety Report 6701947-3 (Version None)
Quarter: 2010Q2

REPORT INFORMATION
  Report Type: 
  Country: None (occurrence: None)
  Receive Date: 20100429
  Receipt Date: 20100421
  Transmission Date: 20101027
  Serious: Yes (Hospitalization)
  Sender: FDA-Public Use
  Company Number: FR-ROCHE-696008

PATIENT
  Sex: Male
  Weight: 98 kg

DRUGS (3)
  1. BEVACIZUMAB [Suspect]
     Indication: RECTAL CANCER METASTATIC
     Route: 042
     Dates: start: 20090622, end: 20091123
  2. FLUOROURACIL [Concomitant]
     Indication: RECTAL CANCER METASTATIC
     Dosage: ROUTE: INTRAVENOUS BOLUS
     Route: 042
     Dates: start: 20090216
  3. FLUOROURACIL [Concomitant]
     Dosage: ROUTE: INTRAVENOUS
     Route: 042
     Dates: start: 20090216

REACTIONS (3)
  - NECROSIS [None]
  - PROCTALGIA [None]
  - RECTAL HAEMORRHAGE [None]
